FAERS Safety Report 17369770 (Version 1)
Quarter: 2020Q1

REPORT INFORMATION
  Report Type: Spontaneous
  Country: US (occurrence: US)
  Receive Date: 20200121
  Receipt Date: 20200121
  Transmission Date: 20200409
  Serious: No
  Sender: FDA-Public Use
  Company Number: None

PATIENT
  Sex: Female

DRUGS (1)
  1. IBRANCE [Suspect]
     Active Substance: PALBOCICLIB
     Dosage: ?          OTHER FREQUENCY:21 DAYS ON 7 DAYS ;?
     Route: 048
     Dates: start: 20180516

REACTIONS (2)
  - Dyspnoea at rest [None]
  - Dyspnoea [None]
